FAERS Safety Report 20391796 (Version 3)
Quarter: 2022Q3

REPORT INFORMATION
  Report Type: Report from Study
  Country: US (occurrence: US)
  Receive Date: 20220128
  Receipt Date: 20220802
  Transmission Date: 20221026
  Serious: Yes (Other)
  Sender: FDA-Public Use
  Company Number: US-NOVARTISTESTPH-NVSC2022US018325

PATIENT
  Sex: Male

DRUGS (2)
  1. ENTRESTO [Suspect]
     Active Substance: SACUBITRIL\VALSARTAN
     Indication: Product used for unknown indication
     Dosage: UNK, BID
     Route: 065
  2. ENTRESTO [Suspect]
     Active Substance: SACUBITRIL\VALSARTAN
     Dosage: 97.1 MG, BID
     Route: 048
     Dates: start: 2019, end: 202203

REACTIONS (4)
  - Illness [Unknown]
  - Joint swelling [Unknown]
  - Fatigue [Unknown]
  - Inappropriate schedule of product administration [Unknown]
